FAERS Safety Report 14786905 (Version 5)
Quarter: 2018Q3

REPORT INFORMATION
  Report Type: Spontaneous
  Country: US (occurrence: US)
  Receive Date: 20180421
  Receipt Date: 20180810
  Transmission Date: 20181010
  Serious: No
  Sender: FDA-Public Use
  Company Number: US-BIOGEN-2018BI00551553

PATIENT
  Age: 54 Year
  Sex: Female

DRUGS (4)
  1. TECFIDERA [Suspect]
     Active Substance: DIMETHYL FUMARATE
     Route: 065
     Dates: start: 20180223, end: 20180404
  2. TECFIDERA [Suspect]
     Active Substance: DIMETHYL FUMARATE
     Indication: MULTIPLE SCLEROSIS
     Route: 048
     Dates: start: 20180223
  3. PRILOSEC [Concomitant]
     Active Substance: OMEPRAZOLE MAGNESIUM
     Indication: PREMEDICATION
     Route: 065
  4. TECFIDERA [Suspect]
     Active Substance: DIMETHYL FUMARATE
     Dosage: MAINTENANCE DOSE
     Route: 048
     Dates: end: 201803

REACTIONS (13)
  - Diarrhoea [Unknown]
  - Chills [Unknown]
  - Body temperature increased [Unknown]
  - Vomiting [Unknown]
  - Drug dose omission [Unknown]
  - Nausea [Recovered/Resolved]
  - Back injury [Recovered/Resolved]
  - Fatigue [Recovered/Resolved]
  - Feeling abnormal [Unknown]
  - Malaise [Unknown]
  - Drug intolerance [Recovered/Resolved]
  - Nasopharyngitis [Not Recovered/Not Resolved]
  - Abdominal pain [Recovered/Resolved]

NARRATIVE: CASE EVENT DATE: 201802
